FAERS Safety Report 6077004-9 (Version None)
Quarter: 2009Q1

REPORT INFORMATION
  Report Type: 
  Country: None (occurrence: None)
  Receive Date: 20090211
  Receipt Date: 20090211
  Transmission Date: 20090719
  Serious: No
  Sender: FDA-Public Use
  Company Number: None

PATIENT
  Age: 80 Year
  Sex: Male
  Weight: 83.9 kg

DRUGS (2)
  1. SITAGLIPTIN [Suspect]
     Indication: DIABETES MELLITUS
     Dosage: 50 MG EVERY DAY PO
     Route: 048
     Dates: start: 20081118, end: 20090115
  2. PRAVASTATIN [Suspect]
     Indication: HYPERLIPIDAEMIA
     Dosage: 40 MG AT BEDTIME PO
     Route: 048
     Dates: start: 20071214

REACTIONS (2)
  - MOVEMENT DISORDER [None]
  - MYALGIA [None]
